FAERS Safety Report 10641496 (Version 1)
Quarter: 2014Q4

REPORT INFORMATION
  Report Type: Spontaneous
  Country: US (occurrence: US)
  Receive Date: 20141209
  Receipt Date: 20141209
  Transmission Date: 20150529
  Serious: Yes (Other)
  Sender: FDA-Public Use
  Company Number: US-PFIZER INC-2014335151

PATIENT
  Sex: Female

DRUGS (1)
  1. GABAPENTIN. [Suspect]
     Active Substance: GABAPENTIN
     Dosage: (1 CAPSULE IN MORNING AND 2 AT NIGHT)

REACTIONS (4)
  - Cerebrovascular accident [Unknown]
  - Drug ineffective [Unknown]
  - Feeling abnormal [Unknown]
  - Burning sensation [Unknown]
